FAERS Safety Report 14973996 (Version 4)
Quarter: 2018Q3

REPORT INFORMATION
  Report Type: Spontaneous
  Country: FI (occurrence: FI)
  Receive Date: 20180605
  Receipt Date: 20180713
  Transmission Date: 20181010
  Serious: Yes (Hospitalization, Disabling, Other)
  Sender: FDA-Public Use
  Company Number: FI-PFIZER INC-2018222078

PATIENT
  Age: 69 Year
  Sex: Male

DRUGS (28)
  1. ATIVAN [Suspect]
     Active Substance: LORAZEPAM
     Indication: HALLUCINATION
     Dosage: 2 MG (0,5+0,5+1)
     Dates: start: 20180104
  2. LEPONEX [Suspect]
     Active Substance: CLOZAPINE
     Indication: HALLUCINATION
     Dosage: UNK
     Dates: start: 20180201
  3. SERENASE (HALOPERIDOL) [Suspect]
     Active Substance: HALOPERIDOL
     Dosage: 2.5 MG, 2X/DAY
     Dates: start: 20180129
  4. LORAZEPAM. [Suspect]
     Active Substance: LORAZEPAM
     Dosage: 2 MG, DAILY (0.5+0.5+1MG)
     Dates: start: 20180201
  5. RISPERIDON ORION [Suspect]
     Active Substance: RISPERIDONE
     Dosage: 4 MG, DAILY (1+0+3MG)
     Dates: start: 20180114
  6. RISPERIDON ORION [Suspect]
     Active Substance: RISPERIDONE
     Dosage: 2 MG, 1X/DAY EACH EVENING (0+0+2)
     Dates: start: 20180124
  7. DIAPAM (DIAZEPAM) [Suspect]
     Active Substance: DIAZEPAM
     Dosage: 10 MG, 3X/DAY
     Dates: start: 20180126
  8. DIAPAM (DIAZEPAM) [Suspect]
     Active Substance: DIAZEPAM
     Dosage: 20 MG, DAILY (5MG+5MG+10MG)
     Dates: start: 20180129, end: 20180201
  9. OLANZAPIN ORION [Suspect]
     Active Substance: OLANZAPINE
     Indication: PSYCHOTIC DISORDER
     Dosage: 10 MG, 1X/DAY
     Dates: start: 20180124
  10. ATIVAN [Suspect]
     Active Substance: LORAZEPAM
     Dosage: 3 MG, AS NEEDED
     Dates: start: 20180107
  11. ATIVAN [Suspect]
     Active Substance: LORAZEPAM
     Dosage: 2 MG, AS NEEDED
     Dates: start: 20180129
  12. LORAZEPAM. [Suspect]
     Active Substance: LORAZEPAM
     Dosage: 1 MG, 3X/DAY (1 MG+ 1 MG+ 1MG)
     Dates: start: 20180107
  13. RISPERIDON ORION [Suspect]
     Active Substance: RISPERIDONE
     Indication: PSYCHOTIC SYMPTOM
     Dosage: 1 MG, 1X/DAY, EACH EVENING
     Dates: start: 20171231
  14. OLANZAPINE. [Suspect]
     Active Substance: OLANZAPINE
     Dosage: 2 MG, 3X/DAY
     Dates: start: 20180201
  15. ATIVAN [Suspect]
     Active Substance: LORAZEPAM
     Dosage: 4 MG, AS NEEDED
     Dates: start: 20180126
  16. OLANZAPIN ORION [Suspect]
     Active Substance: OLANZAPINE
     Indication: HALLUCINATION, VISUAL
     Dosage: 7.5 MG, UNK
     Dates: start: 20180131, end: 20180203
  17. LORAZEPAM. [Suspect]
     Active Substance: LORAZEPAM
     Dosage: 2 MG, DAILY (0.5+0.5+1MG)
     Dates: start: 20180104
  18. RISPERIDON ORION [Suspect]
     Active Substance: RISPERIDONE
     Indication: HALLUCINATION, VISUAL
     Dosage: 2 MG, 1X/DAY
     Dates: start: 20180102
  19. SERENASE (HALOPERIDOL) [Suspect]
     Active Substance: HALOPERIDOL
     Indication: HALLUCINATION
     Dosage: 5 MG, AS NEEDED
     Dates: start: 20180126
  20. DIAPAM (DIAZEPAM) [Suspect]
     Active Substance: DIAZEPAM
     Dosage: 15 MG, 1X/DAY
  21. ATIVAN [Suspect]
     Active Substance: LORAZEPAM
     Dosage: 2 MG, AS NEEDED
     Dates: start: 20180201
  22. RISPERIDON ORION [Suspect]
     Active Substance: RISPERIDONE
     Dosage: 3 MG, DAILY (0MG+0MG+3MG DAILY)
     Dates: start: 20180115
  23. ZYPREXA [Suspect]
     Active Substance: OLANZAPINE
     Indication: PSYCHOTIC SYMPTOM
     Dosage: 10 MG, UNK
     Dates: start: 20180124
  24. ZYPREXA [Suspect]
     Active Substance: OLANZAPINE
     Dosage: 15 MG, UNK
     Dates: start: 20180126
  25. ZYPREXA [Suspect]
     Active Substance: OLANZAPINE
     Dosage: 7.5 MG, UNK
     Dates: start: 20180131, end: 20180203
  26. OLANZAPINE. [Suspect]
     Active Substance: OLANZAPINE
     Dosage: UNK
     Dates: start: 20180203
  27. RISPERIDON ORION [Suspect]
     Active Substance: RISPERIDONE
     Dosage: 3 MG, DAILY (1+0+2 MG)
     Dates: start: 20180107
  28. RISPERIDON ORION [Suspect]
     Active Substance: RISPERIDONE
     Dosage: 1 MG, 0MG+0MG+1MG DAILY
     Dates: start: 20180127, end: 20180129

REACTIONS (5)
  - Parkinsonism [Recovering/Resolving]
  - Hallucination [Recovering/Resolving]
  - Vascular dementia [Recovering/Resolving]
  - Condition aggravated [Recovering/Resolving]
  - Dementia with Lewy bodies [Recovering/Resolving]
